FAERS Safety Report 16995174 (Version 2)
Quarter: 2019Q4

REPORT INFORMATION
  Report Type: Report from Study
  Country: IT (occurrence: IT)
  Receive Date: 20191105
  Receipt Date: 20191108
  Transmission Date: 20200122
  Serious: Yes (Death, Hospitalization)
  Sender: FDA-Public Use
  Company Number: IT-CELLTRION INC.-2019IT026058

PATIENT

DRUGS (3)
  1. CHOP [Suspect]
     Active Substance: CYCLOPHOSPHAMIDE\DOXORUBICIN\PREDNISONE\VINCRISTINE
     Indication: DIFFUSE LARGE B-CELL LYMPHOMA
     Dosage: 375 MG/EV EVERY 3 WEEKS (5 CYCLES)
  2. LENALIDOMIDE [Suspect]
     Active Substance: LENALIDOMIDE
     Indication: PRODUCT USED FOR UNKNOWN INDICATION
     Dosage: 25 MG
     Route: 048
     Dates: start: 20190130, end: 20190219
  3. TRUXIMA [Suspect]
     Active Substance: RITUXIMAB-ABBS
     Indication: DIFFUSE LARGE B-CELL LYMPHOMA
     Dosage: UNK
     Route: 065
     Dates: start: 20180626, end: 20181107

REACTIONS (12)
  - Hypotension [Recovered/Resolved]
  - Pain [Recovered/Resolved]
  - Disease progression [Fatal]
  - Constipation [Unknown]
  - Pancytopenia [Unknown]
  - Cellulitis [Recovered/Resolved]
  - Thrombocytopenia [Recovered/Resolved]
  - Klebsiella infection [Recovered/Resolved]
  - Dysphagia [Unknown]
  - Pyrexia [Recovered/Resolved]
  - Asthenia [Unknown]
  - Blood lactate dehydrogenase increased [Unknown]

NARRATIVE: CASE EVENT DATE: 20181229
